FAERS Safety Report 22139741 (Version 5)
Quarter: 2023Q2

REPORT INFORMATION
  Report Type: Spontaneous
  Country: PT (occurrence: PT)
  Receive Date: 20230327
  Receipt Date: 20230519
  Transmission Date: 20230721
  Serious: Yes (Hospitalization)
  Sender: FDA-Public Use
  Company Number: PT-GLAXOSMITHKLINE-PT2023EME036233

PATIENT
  Age: 42 Year
  Sex: Female

DRUGS (7)
  1. LOSARTAN POTASSIUM [Suspect]
     Active Substance: LOSARTAN POTASSIUM
     Dosage: 1.4 G
     Route: 048
  2. AMLODIPINE [Suspect]
     Active Substance: AMLODIPINE BESYLATE
     Dosage: 140 MG
  3. CARVEDILOL [Suspect]
     Active Substance: CARVEDILOL
     Dosage: 250 MG
  4. ETODOLAC [Suspect]
     Active Substance: ETODOLAC
     Dosage: 3 G
  5. ACEMETACIN [Suspect]
     Active Substance: ACEMETACIN
     Dosage: 900 MG
  6. AMOXICILLIN [Suspect]
     Active Substance: AMOXICILLIN
     Dosage: 8 G
  7. CLAVULANIC ACID [Suspect]
     Active Substance: CLAVULANIC ACID
     Dosage: 1.6 MG

REACTIONS (2)
  - Toxicity to various agents [Recovering/Resolving]
  - Intentional overdose [Recovering/Resolving]
